FAERS Safety Report 5093121-4 (Version None)
Quarter: 2006Q3

REPORT INFORMATION
  Report Type: 
  Country: None (occurrence: None)
  Receive Date: 20060828
  Receipt Date: 20060818
  Transmission Date: 20061208
  Serious: Yes (Hospitalization, Other)
  Sender: FDA-Public Use
  Company Number: GBWYE738518AUG06

PATIENT
  Age: 28 Year
  Sex: Male

DRUGS (6)
  1. PIPERACILLIN AND TAZOBACTAM [Suspect]
     Dosage: 4.5 MG 3X PER 1 DAY INTRAVENOUS
     Route: 042
     Dates: start: 20060629, end: 20060704
  2. CREON [Concomitant]
  3. COLISTIMETHATE SODIUM(COLISTIN MESILATE SODIUM) [Concomitant]
  4. VITAMIN A [Concomitant]
  5. VITAMIN D [Concomitant]
  6. VITAMIN E [Concomitant]

REACTIONS (4)
  - ANOREXIA [None]
  - FATIGUE [None]
  - MALAISE [None]
  - RASH ERYTHEMATOUS [None]
